FAERS Safety Report 6110797-0 (Version None)
Quarter: 2009Q1

REPORT INFORMATION
  Report Type: 
  Country: None (occurrence: None)
  Receive Date: 20090311
  Receipt Date: 20090304
  Transmission Date: 20090719
  Serious: No
  Sender: FDA-Public Use
  Company Number: US-JNJFOC-20090302330

PATIENT
  Sex: Male
  Weight: 86.18 kg

DRUGS (6)
  1. FENTANYL TRANSDERMAL SYSTEM [Suspect]
     Indication: BACK PAIN
     Route: 062
  2. DURAGESIC-100 [Suspect]
     Indication: BACK PAIN
     Route: 062
  3. DILANDID [Concomitant]
     Indication: BREAKTHROUGH PAIN
     Route: 048
  4. XANAX [Concomitant]
     Indication: ANXIETY
     Route: 048
  5. XANAX [Concomitant]
     Indication: SLEEP DISORDER THERAPY
     Route: 048
  6. ACTIQ [Concomitant]
     Indication: PAIN
     Dosage: AS NEEDED
     Route: 062

REACTIONS (4)
  - DIZZINESS [None]
  - INCORRECT DRUG ADMINISTRATION RATE [None]
  - PAIN [None]
  - PRODUCT QUALITY ISSUE [None]
